FAERS Safety Report 5192539-9 (Version None)
Quarter: 2006Q4

REPORT INFORMATION
  Report Type: 
  Country: None (occurrence: None)
  Receive Date: 20061220
  Receipt Date: 20061205
  Transmission Date: 20070319
  Serious: Yes (Hospitalization)
  Sender: FDA-Public Use
  Company Number: 233404

PATIENT
  Age: 59 Year
  Sex: Male

DRUGS (1)
  1. RAPTIVA [Suspect]
     Indication: DRUG USE FOR UNKNOWN INDICATION
     Dosage: 1 MG/KG, 1/WEEK, SUBCUTANEOUS
     Route: 058
     Dates: start: 20060929, end: 20061116

REACTIONS (5)
  - ARTHRALGIA [None]
  - BONE PAIN [None]
  - FATIGUE [None]
  - PSORIASIS [None]
  - WHITE BLOOD CELL COUNT INCREASED [None]
